FAERS Safety Report 7878491-3 (Version None)
Quarter: 2011Q4

REPORT INFORMATION
  Report Type: 
  Country: None (occurrence: None)
  Receive Date: 20111014
  Receipt Date: 20110729
  Transmission Date: 20120403
  Serious: No
  Sender: FDA-Public Use
  Company Number: 293634USA

PATIENT
  Sex: Male

DRUGS (1)
  1. FENTANYL [Suspect]
     Dosage: (800 MCG)

REACTIONS (3)
  - OVERDOSE [None]
  - NAUSEA [None]
  - VOMITING [None]
